FAERS Safety Report 19865052 (Version 3)
Quarter: 2021Q4

REPORT INFORMATION
  Report Type: Spontaneous
  Country: GB (occurrence: GB)
  Receive Date: 20210921
  Receipt Date: 20211021
  Transmission Date: 20220303
  Serious: Yes (Other)
  Sender: FDA-Public Use
  Company Number: GB-CELLTRION INC.-2021GB005257

PATIENT

DRUGS (101)
  1. DOCETAXEL [Suspect]
     Active Substance: DOCETAXEL
     Indication: Breast cancer metastatic
     Dosage: 120 MG, Q3W
     Route: 042
     Dates: start: 20160808, end: 20160830
  2. DOCETAXEL [Suspect]
     Active Substance: DOCETAXEL
     Dosage: 130 MILLIGRAM, Q3WK (CUMULATIVE DOSE 2200 MG) 130 MG, Q3W
     Route: 042
     Dates: start: 20160511, end: 20160808
  3. DOCETAXEL [Suspect]
     Active Substance: DOCETAXEL
     Dosage: 120 MG, Q3W
     Route: 042
     Dates: start: 20160511, end: 20160808
  4. DOCETAXEL [Suspect]
     Active Substance: DOCETAXEL
     Dosage: 130 MILLIGRAM, 3/WEEK
     Route: 042
     Dates: start: 20160511, end: 20160808
  5. DOCETAXEL [Suspect]
     Active Substance: DOCETAXEL
     Dosage: 390 MG, QW; 130 MILLIGRAM, 3/WEEK
     Route: 042
     Dates: start: 20160511, end: 20160808
  6. DOCETAXEL [Suspect]
     Active Substance: DOCETAXEL
     Dosage: 120 MG, TIW
     Route: 042
     Dates: start: 20160808, end: 20160830
  7. DOCETAXEL [Suspect]
     Active Substance: DOCETAXEL
     Dosage: 360 MG, QW
     Route: 042
     Dates: start: 20160808, end: 20160830
  8. DOCETAXEL [Suspect]
     Active Substance: DOCETAXEL
     Dosage: 390 MG, QW
     Route: 042
     Dates: start: 20160511, end: 20160808
  9. DOCETAXEL [Suspect]
     Active Substance: DOCETAXEL
     Dosage: 360 MG, QW; 120 MILLIGRAM, 3 TIMES/WK
     Route: 042
     Dates: start: 20160808, end: 20160830
  10. DOCETAXEL [Suspect]
     Active Substance: DOCETAXEL
     Dosage: 390 MG, QW
     Route: 042
     Dates: start: 20160511, end: 20160808
  11. DOCETAXEL [Suspect]
     Active Substance: DOCETAXEL
     Dosage: 120 MG, TIW
     Route: 042
     Dates: start: 20160808, end: 20160830
  12. DOCETAXEL [Suspect]
     Active Substance: DOCETAXEL
     Dosage: 120 MG, TIW
     Route: 042
     Dates: start: 20160808, end: 20160830
  13. DOCETAXEL [Suspect]
     Active Substance: DOCETAXEL
     Dosage: 120 MG, Q3W
     Route: 042
     Dates: start: 20160808, end: 20160830
  14. DOCETAXEL [Suspect]
     Active Substance: DOCETAXEL
     Dosage: 120 MG, TIW
     Route: 042
     Dates: start: 20160808, end: 20160830
  15. DOCETAXEL [Suspect]
     Active Substance: DOCETAXEL
     Dosage: 130 MG, TIW
     Route: 042
     Dates: start: 20160511, end: 20160808
  16. DOCETAXEL [Suspect]
     Active Substance: DOCETAXEL
     Dosage: 130 MG, Q3W
     Route: 042
     Dates: start: 20160511, end: 20160808
  17. ANASTROZOLE [Suspect]
     Active Substance: ANASTROZOLE
     Indication: Breast cancer metastatic
     Dosage: 1 MG, QD
     Route: 048
     Dates: start: 20170127
  18. ANASTROZOLE [Suspect]
     Active Substance: ANASTROZOLE
     Dosage: UNK
  19. ANASTROZOLE [Suspect]
     Active Substance: ANASTROZOLE
     Dosage: 1 MG, QD
     Route: 048
     Dates: start: 20170127
  20. ANASTROZOLE [Suspect]
     Active Substance: ANASTROZOLE
     Dosage: UNK
  21. ANASTROZOLE [Suspect]
     Active Substance: ANASTROZOLE
     Dosage: 1 MG, QD
     Route: 048
     Dates: start: 20170127
  22. ANASTROZOLE [Suspect]
     Active Substance: ANASTROZOLE
     Dosage: 1 MG, QD
     Route: 048
     Dates: start: 20170127
  23. TRASTUZUMAB [Suspect]
     Active Substance: TRASTUZUMAB
     Indication: Breast cancer metastatic
     Dosage: 1575 MG, QW
     Route: 042
     Dates: start: 20160510, end: 20160510
  24. TRASTUZUMAB [Suspect]
     Active Substance: TRASTUZUMAB
     Dosage: 388.5 MG
     Route: 042
     Dates: start: 20160606, end: 20160606
  25. TRASTUZUMAB [Suspect]
     Active Substance: TRASTUZUMAB
     Dosage: 378 MG
     Route: 042
     Dates: start: 20160627, end: 20160627
  26. TRASTUZUMAB [Suspect]
     Active Substance: TRASTUZUMAB
     Dosage: 1165.5 MG, QW (388.5 MILLIGRAM, 3/WEEK )
     Route: 042
     Dates: start: 20160618, end: 20160830
  27. TRASTUZUMAB [Suspect]
     Active Substance: TRASTUZUMAB
     Dosage: 1102.5 MG, QW ( 367.5 MILLIGRAM, 3/WEEK)
     Route: 042
     Dates: start: 20160920, end: 20170110
  28. TRASTUZUMAB [Suspect]
     Active Substance: TRASTUZUMAB
     Dosage: 1071 MG, QW (357 MILLIGRAM, 3/WEEK )
     Route: 042
     Dates: start: 20170201, end: 20170426
  29. TRASTUZUMAB [Suspect]
     Active Substance: TRASTUZUMAB
     Dosage: 1039.5 MG, QW (346.5 MILLIGRAM, 3/WEEK)
     Route: 042
     Dates: start: 20170517, end: 20170703
  30. TRASTUZUMAB [Suspect]
     Active Substance: TRASTUZUMAB
     Dosage: 1008 MG, QW (336 MILLIGRAM, 3/WEEK)
     Route: 042
     Dates: start: 20170724
  31. TRASTUZUMAB [Suspect]
     Active Substance: TRASTUZUMAB
     Dosage: TRASTUZUMAB WAS GIVEN WITH PERTUZUMAB
     Route: 042
     Dates: start: 20180510
  32. TRASTUZUMAB [Suspect]
     Active Substance: TRASTUZUMAB
     Dosage: 378 MG, TIW
     Route: 042
     Dates: start: 20201013
  33. TRASTUZUMAB [Suspect]
     Active Substance: TRASTUZUMAB
     Dosage: 367.5 MG, Q3W
     Dates: start: 20160920, end: 20170110
  34. TRASTUZUMAB [Suspect]
     Active Substance: TRASTUZUMAB
     Dosage: 336 MG, TIW
     Route: 042
     Dates: start: 20180925, end: 20200922
  35. TRASTUZUMAB [Suspect]
     Active Substance: TRASTUZUMAB
     Dosage: 336 MG, TIW
     Route: 042
     Dates: start: 20170724, end: 20180904
  36. TRASTUZUMAB [Suspect]
     Active Substance: TRASTUZUMAB
     Dosage: 357 MG, TIW
     Route: 042
     Dates: start: 20170201, end: 20170426
  37. TRASTUZUMAB [Suspect]
     Active Substance: TRASTUZUMAB
     Dosage: 346.5 MG, TIW
     Route: 042
     Dates: start: 20170517, end: 20170703
  38. TRASTUZUMAB [Suspect]
     Active Substance: TRASTUZUMAB
     Dosage: 388.5 MG, Q3W
     Route: 042
     Dates: start: 20160718, end: 20160830
  39. TRASTUZUMAB [Suspect]
     Active Substance: TRASTUZUMAB
     Dosage: 1102.5 MG, TIW
     Route: 042
     Dates: start: 20160920, end: 20170110
  40. TRASTUZUMAB [Suspect]
     Active Substance: TRASTUZUMAB
     Dosage: 525 MG, Q3W
     Route: 042
     Dates: start: 20160510, end: 20160510
  41. TRASTUZUMAB [Suspect]
     Active Substance: TRASTUZUMAB
     Dosage: 525 MG, TIW
     Route: 041
     Dates: start: 20160510, end: 20160510
  42. TRASTUZUMAB [Suspect]
     Active Substance: TRASTUZUMAB
     Dosage: 388.5 MG, TIW
     Route: 042
     Dates: start: 20160718, end: 20160830
  43. TRASTUZUMAB [Suspect]
     Active Substance: TRASTUZUMAB
     Dosage: 388.5 MG, QW
     Route: 042
     Dates: start: 20160718, end: 20160830
  44. TRASTUZUMAB [Suspect]
     Active Substance: TRASTUZUMAB
     Dosage: 378 MG, TIW
     Route: 042
     Dates: start: 20160627, end: 20160627
  45. TRASTUZUMAB [Suspect]
     Active Substance: TRASTUZUMAB
     Dosage: 336 MG, Q3W
     Route: 041
     Dates: start: 20180925, end: 20200922
  46. TRASTUZUMAB [Suspect]
     Active Substance: TRASTUZUMAB
     Dosage: 357 MG, Q3W
     Route: 042
     Dates: start: 20170201, end: 20170426
  47. TRASTUZUMAB [Suspect]
     Active Substance: TRASTUZUMAB
     Dosage: 388.5 MG, Q3W
     Route: 042
     Dates: start: 20160718, end: 20160830
  48. TRASTUZUMAB [Suspect]
     Active Substance: TRASTUZUMAB
     Dosage: 388.5 MG
     Route: 042
     Dates: start: 20160606, end: 20160606
  49. PERTUZUMAB [Suspect]
     Active Substance: PERTUZUMAB
     Indication: Breast cancer metastatic
     Dosage: TRASTUZUMAB WAS GIVEN WITH PERTUZUMAB
     Dates: start: 20180510
  50. PERTUZUMAB [Suspect]
     Active Substance: PERTUZUMAB
     Dosage: 420 MG, TIW
     Route: 042
     Dates: start: 20160606
  51. PERTUZUMAB [Suspect]
     Active Substance: PERTUZUMAB
     Dosage: (LOADING DOSE) 840 MG, TIW
     Route: 042
     Dates: start: 20160510, end: 20160510
  52. PERTUZUMAB [Suspect]
     Active Substance: PERTUZUMAB
     Dosage: UNK
     Dates: start: 20180510
  53. PERTUZUMAB [Suspect]
     Active Substance: PERTUZUMAB
     Dosage: 1260 MG, QW
     Route: 042
     Dates: start: 20160606
  54. NERATINIB [Suspect]
     Active Substance: NERATINIB
     Indication: Breast cancer
     Dosage: 336 MG, TIW
     Route: 042
     Dates: start: 20180925, end: 20200922
  55. NERATINIB [Suspect]
     Active Substance: NERATINIB
     Dosage: 336 MG, Q3W
     Route: 042
     Dates: start: 20180925, end: 20200922
  56. NERATINIB [Suspect]
     Active Substance: NERATINIB
     Dosage: 378 MG, Q3W
     Route: 042
     Dates: start: 20201013
  57. NERATINIB [Suspect]
     Active Substance: NERATINIB
     Dosage: 378 MG, Q3W
     Route: 042
     Dates: start: 20180925, end: 20200922
  58. NERATINIB [Suspect]
     Active Substance: NERATINIB
     Dosage: 378 MG, Q3W
     Route: 042
     Dates: start: 20201013
  59. NERATINIB [Suspect]
     Active Substance: NERATINIB
     Dosage: 336 MG, Q3W
     Route: 042
     Dates: start: 20180925, end: 20200922
  60. NERATINIB [Suspect]
     Active Substance: NERATINIB
     Dosage: 378 MG, TIW
     Route: 042
     Dates: start: 20201013
  61. CHLORPHENIRAMINE MALEATE [Concomitant]
     Active Substance: CHLORPHENIRAMINE MALEATE
     Indication: Product used for unknown indication
     Dosage: 4 MILLIGRAM
     Route: 048
     Dates: start: 20160627, end: 20160830
  62. CHLORPHENIRAMINE MALEATE [Concomitant]
     Active Substance: CHLORPHENIRAMINE MALEATE
     Dosage: 4 MG
     Route: 048
     Dates: start: 20160627, end: 20160830
  63. CODEINE PHOSPHATE [Concomitant]
     Active Substance: CODEINE PHOSPHATE
     Indication: Product used for unknown indication
     Dosage: 60 MG
     Route: 048
     Dates: start: 20161101, end: 20161101
  64. CYCLIZINE [Concomitant]
     Active Substance: CYCLIZINE
     Indication: Product used for unknown indication
     Dosage: 50 MG
     Route: 048
     Dates: start: 20160627, end: 20160830
  65. CYCLIZINE [Concomitant]
     Active Substance: CYCLIZINE
     Dosage: 50 MG
     Route: 048
     Dates: start: 20160627, end: 20160830
  66. DEXAMETHASONE [Concomitant]
     Active Substance: DEXAMETHASONE
     Indication: Product used for unknown indication
     Dosage: 8 MG
     Route: 048
     Dates: start: 20160511, end: 20160830
  67. DEXAMETHASONE [Concomitant]
     Active Substance: DEXAMETHASONE
     Dosage: 8 MG
     Route: 048
     Dates: start: 20160511, end: 20160830
  68. ENOXAPARIN [Concomitant]
     Active Substance: ENOXAPARIN
     Indication: Product used for unknown indication
     Dosage: 40 MG
     Route: 058
     Dates: start: 20161101, end: 20161101
  69. ENOXAPARIN [Concomitant]
     Active Substance: ENOXAPARIN
     Dosage: 40 MG
     Dates: start: 20161101, end: 20161101
  70. IRON [Concomitant]
     Active Substance: IRON
     Indication: Product used for unknown indication
     Dosage: UNK
     Dates: start: 20190612
  71. IRON [Concomitant]
     Active Substance: IRON
     Dosage: UNK
     Route: 048
     Dates: start: 20190612
  72. METOCLOPRAMIDE [Concomitant]
     Active Substance: METOCLOPRAMIDE
     Indication: Product used for unknown indication
     Dosage: 10 MG
     Route: 048
     Dates: start: 20160511, end: 20160830
  73. METOCLOPRAMIDE [Concomitant]
     Active Substance: METOCLOPRAMIDE
     Dosage: 10 MG
     Dates: start: 20160511, end: 20160830
  74. ACETAMINOPHEN [Concomitant]
     Active Substance: ACETAMINOPHEN
     Indication: Product used for unknown indication
     Dosage: UNK
     Route: 048
  75. ACETAMINOPHEN [Concomitant]
     Active Substance: ACETAMINOPHEN
     Dosage: UNK
     Route: 048
  76. PREGABALIN [Concomitant]
     Active Substance: PREGABALIN
     Indication: Product used for unknown indication
     Dosage: UNK
     Route: 065
  77. PREGABALIN [Concomitant]
     Active Substance: PREGABALIN
     Dosage: UNK
  78. MORPHINE [Concomitant]
     Active Substance: MORPHINE
     Indication: Product used for unknown indication
     Dosage: 30 MG, QD
     Route: 048
  79. MORPHINE [Concomitant]
     Active Substance: MORPHINE
     Dosage: 10 MG, QD
     Route: 048
     Dates: start: 20161101, end: 20161102
  80. MORPHINE [Concomitant]
     Active Substance: MORPHINE
     Dosage: 10 MG, QD
     Route: 048
     Dates: start: 20161101, end: 20161102
  81. MORPHINE [Concomitant]
     Active Substance: MORPHINE
     Dosage: 10 MG, QD
     Route: 048
     Dates: start: 20161101, end: 20161102
  82. MORPHINE [Concomitant]
     Active Substance: MORPHINE
     Dosage: UNK
  83. MORPHINE [Concomitant]
     Active Substance: MORPHINE
     Dosage: UNK
  84. MORPHINE [Concomitant]
     Active Substance: MORPHINE
     Dosage: 10 MG, QD
     Route: 048
     Dates: start: 20161101, end: 20161102
  85. MORPHINE [Concomitant]
     Active Substance: MORPHINE
     Dosage: 30 MG, QD
     Route: 048
  86. MORPHINE [Concomitant]
     Active Substance: MORPHINE
     Dosage: 10 MG, QD
     Route: 048
     Dates: start: 20161101, end: 20161102
  87. MORPHINE SULFATE [Concomitant]
     Active Substance: MORPHINE SULFATE
     Indication: Product used for unknown indication
     Dosage: 60 MG, QD
     Route: 048
  88. MORPHINE SULFATE [Concomitant]
     Active Substance: MORPHINE SULFATE
     Dosage: 120 MG
     Route: 048
  89. MORPHINE SULFATE [Concomitant]
     Active Substance: MORPHINE SULFATE
     Dosage: 10 MG, QD
     Route: 048
     Dates: start: 20161101, end: 20161102
  90. MORPHINE SULFATE [Concomitant]
     Active Substance: MORPHINE SULFATE
     Dosage: 120 MG
  91. MORPHINE SULFATE [Concomitant]
     Active Substance: MORPHINE SULFATE
     Dosage: 60 MG, QD
  92. MORPHINE SULFATE [Concomitant]
     Active Substance: MORPHINE SULFATE
     Dosage: 60 MG, QD
     Route: 048
  93. MORPHINE SULFATE [Concomitant]
     Active Substance: MORPHINE SULFATE
     Dosage: 60 MG, QD; 60 MG, EVERY 0.5 DAY (60 MILLIGRAM, DAILY)
  94. MORPHINE SULFATE [Concomitant]
     Active Substance: MORPHINE SULFATE
     Dosage: UNK
  95. MORPHINE SULFATE [Concomitant]
     Active Substance: MORPHINE SULFATE
     Dosage: 60 MG, QD
     Route: 048
  96. MORPHINE SULFATE [Concomitant]
     Active Substance: MORPHINE SULFATE
     Dosage: 10 MG, QD
     Dates: start: 20161101, end: 20161102
  97. MORPHINE SULFATE [Concomitant]
     Active Substance: MORPHINE SULFATE
     Dosage: 60 MG, 0.5 DAY
     Route: 048
  98. DOMPERIDONE [Concomitant]
     Active Substance: DOMPERIDONE
     Indication: Product used for unknown indication
     Dosage: UNK
     Route: 065
     Dates: start: 20191211
  99. RAMIPRIL [Concomitant]
     Active Substance: RAMIPRIL
     Dosage: UNK
     Route: 048
     Dates: start: 20161005
  100. RAMIPRIL [Concomitant]
     Active Substance: RAMIPRIL
     Dosage: 1.25 MG, QD
     Route: 048
     Dates: start: 20190102
  101. RAMIPRIL [Concomitant]
     Active Substance: RAMIPRIL
     Dosage: UNK

REACTIONS (10)
  - Ejection fraction decreased [Not Recovered/Not Resolved]
  - Ejection fraction decreased [Not Recovered/Not Resolved]
  - Lower respiratory tract infection [Recovered/Resolved]
  - Neutropenia [Recovered/Resolved]
  - Rhinorrhoea [Not Recovered/Not Resolved]
  - Haemoglobin decreased [Recovered/Resolved]
  - Haemoglobin decreased [Recovered/Resolved]
  - Anaemia [Recovered/Resolved]
  - Lacrimation increased [Recovered/Resolved]
  - Off label use [Unknown]

NARRATIVE: CASE EVENT DATE: 20160715
